FAERS Safety Report 6537877-X (Version None)
Quarter: 2010Q1

REPORT INFORMATION
  Report Type: 
  Country: None (occurrence: None)
  Receive Date: 20100112
  Receipt Date: 20100112
  Transmission Date: 20100710
  Serious: Yes (Other)
  Sender: FDA-Public Use
  Company Number: None

PATIENT
  Sex: Female
  Weight: 76.2043 kg

DRUGS (1)
  1. LISINOPRIL [Suspect]
     Indication: CARDIAC DISORDER
     Dosage: 1 TABLE 1XDAY PO
     Route: 048
     Dates: start: 20090816, end: 20090925

REACTIONS (4)
  - HYPERSENSITIVITY [None]
  - OESOPHAGEAL PAIN [None]
  - RASH [None]
  - TINNITUS [None]
